FAERS Safety Report 17286613 (Version 1)
Quarter: 2020Q1

REPORT INFORMATION
  Report Type: Spontaneous
  Country: US (occurrence: US)
  Receive Date: 20200119
  Receipt Date: 20200119
  Transmission Date: 20200409
  Serious: No
  Sender: FDA-Public Use
  Company Number: US-009507513-2001USA000115

PATIENT
  Sex: Male

DRUGS (3)
  1. EMEND [Suspect]
     Active Substance: APREPITANT
     Indication: NEURODERMATITIS
     Dosage: 80 MG DAILY; A SINGLE 4-DAY COURSE
     Route: 048
  2. EMEND [Suspect]
     Active Substance: APREPITANT
     Indication: PRURITUS
     Dosage: 80 MG DAILY; A SECOND 4-DAY COURSE
     Route: 048
  3. EMEND [Suspect]
     Active Substance: APREPITANT
     Dosage: 80 MG X4 DAYS EVERY 3 MONTHS
     Route: 048

REACTIONS (1)
  - Off label use [Unknown]
